FAERS Safety Report 5961935-1 (Version None)
Quarter: 2008Q4

REPORT INFORMATION
  Report Type: 
  Country: None (occurrence: None)
  Receive Date: 20081121
  Receipt Date: 20080321
  Transmission Date: 20090506
  Serious: Yes (Hospitalization)
  Sender: FDA-Public Use
  Company Number: PHEH2008US03035

PATIENT
  Sex: Male

DRUGS (11)
  1. ZOMETA [Suspect]
     Dates: start: 20050407, end: 20060406
  2. SUNITINIB MALATE [Concomitant]
     Indication: METASTATIC RENAL CELL CARCINOMA
     Dosage: 37.5 MG, UNK
     Route: 048
     Dates: start: 20040730
  3. SYNTHROID [Concomitant]
     Route: 048
     Dates: start: 20060424
  4. OXYCODONE HCL [Concomitant]
     Route: 048
     Dates: start: 20041007
  5. LISINOPRIL [Concomitant]
     Route: 048
     Dates: start: 20050118
  6. IBUPROFEN TABLETS [Concomitant]
     Route: 048
     Dates: start: 20050922
  7. PEPTO-BISMOL [Concomitant]
     Route: 048
     Dates: start: 20040801
  8. MIRALAX [Concomitant]
     Dosage: UNK, UNK
     Route: 048
     Dates: start: 20061228
  9. ALKA-SELTZER /USA/ [Concomitant]
     Route: 048
     Dates: start: 20070219
  10. PENICILLINE ^CHIBRET^ [Concomitant]
     Route: 048
     Dates: start: 20070711
  11. VITAMIN D [Concomitant]
     Route: 048
     Dates: start: 20070829

REACTIONS (1)
  - OSTEONECROSIS [None]
